FAERS Safety Report 18337794 (Version 2)
Quarter: 2021Q3

REPORT INFORMATION
  Report Type: Spontaneous
  Country: US (occurrence: US)
  Receive Date: 20201002
  Receipt Date: 20210713
  Transmission Date: 20211014
  Serious: Yes (Other)
  Sender: FDA-Public Use
  Company Number: US-SA-2020SA268910

PATIENT
  Age: 41 Year
  Sex: Male

DRUGS (1)
  1. ZANTAC [Suspect]
     Active Substance: RANITIDINE HYDROCHLORIDE
     Indication: GASTRIC ULCER
     Dosage: UNK, QD
     Dates: start: 198501, end: 199701

REACTIONS (1)
  - Gastric cancer stage 0 [Unknown]

NARRATIVE: CASE EVENT DATE: 19970101
